FAERS Safety Report 10981590 (Version 1)
Quarter: 2015Q1

REPORT INFORMATION
  Report Type: Spontaneous
  Country: US (occurrence: None)
  Receive Date: 20150227
  Receipt Date: 20150227
  Transmission Date: 20150721
  Serious: Yes (Life-Threatening, Hospitalization)
  Sender: FDA-Public Use
  Company Number: LMI-2014-00199

PATIENT
  Age: 51 Year
  Sex: Female

DRUGS (1)
  1. DEFINITY [Suspect]
     Active Substance: PERFLUTREN
     Indication: STRESS ECHOCARDIOGRAM
     Dosage: 3 CC DIFINITY DILUTED IN 7 CC NORMAL SALINE) (2 ML,1 IN 1 D)
     Route: 040
     Dates: start: 20140509, end: 20140509

REACTIONS (7)
  - Hypersensitivity [None]
  - Sneezing [None]
  - Flushing [None]
  - Unresponsive to stimuli [None]
  - Nausea [None]
  - Hypotension [None]
  - Pruritus [None]

NARRATIVE: CASE EVENT DATE: 20140509
